FAERS Safety Report 11330890 (Version 2)
Quarter: 2015Q3

REPORT INFORMATION
  Report Type: Spontaneous
  Country: US (occurrence: US)
  Receive Date: 20150803
  Receipt Date: 20150805
  Transmission Date: 20151125
  Serious: No
  Sender: FDA-Public Use
  Company Number: US-TEVA-582266USA

PATIENT
  Weight: 56.75 kg

DRUGS (9)
  1. NUVIGIL [Suspect]
     Active Substance: ARMODAFINIL
     Indication: SOMNOLENCE
     Route: 065
  2. LIDODERM [Concomitant]
     Active Substance: LIDOCAINE
     Indication: PAIN
  3. MS CONTIN [Concomitant]
     Active Substance: MORPHINE SULFATE
     Indication: PAIN
  4. ALPRAZOLAM. [Concomitant]
     Active Substance: ALPRAZOLAM
     Indication: PAIN
  5. ESTRADIOL. [Concomitant]
     Active Substance: ESTRADIOL
     Indication: OESTROGEN REPLACEMENT THERAPY
  6. TENORMIN [Concomitant]
     Active Substance: ATENOLOL
     Indication: CARDIAC DISORDER
  7. ACTIQ [Suspect]
     Active Substance: FENTANYL CITRATE
     Indication: BREAKTHROUGH PAIN
     Dosage: UP TO 4 A DAY AS NEEDED
     Route: 048
     Dates: start: 2013, end: 201501
  8. NEURONTIN [Concomitant]
     Active Substance: GABAPENTIN
     Indication: NERVE INJURY
  9. ROBAXIN [Concomitant]
     Active Substance: METHOCARBAMOL
     Indication: MUSCLE SPASMS

REACTIONS (12)
  - Feeding disorder [Unknown]
  - Dental caries [Unknown]
  - Abscess [Unknown]
  - Weight decreased [Unknown]
  - Emotional distress [Unknown]
  - Toothache [Unknown]
  - Social avoidant behaviour [Unknown]
  - Tooth fracture [Unknown]
  - Infection [Unknown]
  - Tooth injury [Unknown]
  - White blood cell count increased [Unknown]
  - Tooth erosion [Unknown]
